FAERS Safety Report 7064681-9 (Version None)
Quarter: 2010Q4

REPORT INFORMATION
  Report Type: 
  Country: None (occurrence: None)
  Receive Date: 20101022
  Receipt Date: 20101022
  Transmission Date: 20110411
  Serious: Yes (Other)
  Sender: FDA-Public Use
  Company Number: None

PATIENT
  Sex: Female

DRUGS (1)
  1. PROPARACAINE HCL [Suspect]
     Dosage: 0.5% TWO DROPS TO EYE
     Route: 047

REACTIONS (3)
  - INCORRECT DOSE ADMINISTERED [None]
  - PRODUCT CONTAINER SEAL ISSUE [None]
  - PRODUCT DROPPER ISSUE [None]
